FAERS Safety Report 8046081-8 (Version None)
Quarter: 2012Q1

REPORT INFORMATION
  Report Type: 
  Country: None (occurrence: None)
  Receive Date: 20120113
  Receipt Date: 20120102
  Transmission Date: 20120608
  Serious: Yes (Death)
  Sender: FDA-Public Use
  Company Number: US-BAYER-2012-001068

PATIENT
  Age: 41 Year
  Sex: Female

DRUGS (7)
  1. LORATIDINE-PSEUDOEPHEDRINE [Suspect]
  2. NAPROXEN SODIUM [Suspect]
  3. PROPRANOLOL [Suspect]
  4. PAROXETINE [Suspect]
  5. LOPERAMIDE [Suspect]
  6. MULTI-VITAMIN [Suspect]
  7. COLESEVELAM HYDROCHLORIDE [Suspect]

REACTIONS (1)
  - TOXICITY TO VARIOUS AGENTS [None]
